FAERS Safety Report 9704738 (Version 2)
Quarter: 2013Q4

REPORT INFORMATION
  Report Type: Spontaneous
  Country: SE (occurrence: SE)
  Receive Date: 20131122
  Receipt Date: 20131209
  Transmission Date: 20140711
  Serious: Yes (Death)
  Sender: FDA-Public Use
  Company Number: SE-ROCHE-1307847

PATIENT
  Age: 45 Year
  Sex: Male
  Weight: 85 kg

DRUGS (7)
  1. ZELBORAF [Suspect]
     Indication: MALIGNANT MELANOMA
     Route: 065
     Dates: start: 20130903
  2. ZELBORAF [Suspect]
     Indication: METASTASES TO CENTRAL NERVOUS SYSTEM
     Route: 065
     Dates: start: 20130916, end: 20131024
  3. PARACETAMOL [Concomitant]
  4. BETAMETASONA [Concomitant]
  5. CILAXORAL [Concomitant]
  6. ONDANSETRON [Concomitant]
  7. LINATIL [Concomitant]

REACTIONS (1)
  - Cerebral haemorrhage [Fatal]
